FAERS Safety Report 17855141 (Version 1)
Quarter: 2020Q2

REPORT INFORMATION
  Report Type: Spontaneous
  Country: US (occurrence: US)
  Receive Date: 20200602
  Receipt Date: 20200602
  Transmission Date: 20200714
  Serious: Yes (Hospitalization)
  Sender: FDA-Public Use
  Company Number: None

PATIENT
  Age: 48 Year
  Sex: Male

DRUGS (2)
  1. SILDENAFIL. [Concomitant]
     Active Substance: SILDENAFIL
  2. AMBRISENTAN 10MG [MYLAN] [Suspect]
     Active Substance: AMBRISENTAN
     Route: 048
     Dates: start: 201911

REACTIONS (1)
  - Hypertension [None]

NARRATIVE: CASE EVENT DATE: 20200522
